FAERS Safety Report 8171675-9 (Version None)
Quarter: 2012Q1

REPORT INFORMATION
  Report Type: 
  Country: None (occurrence: None)
  Receive Date: 20120228
  Receipt Date: 20120220
  Transmission Date: 20120608
  Serious: Yes (Other)
  Sender: FDA-Public Use
  Company Number: US-BAYER-2012-016864

PATIENT
  Age: 45 Year
  Sex: Female
  Weight: 96 kg

DRUGS (8)
  1. ALEVE (CAPLET) [Suspect]
     Indication: FIBROMYALGIA
  2. CYMBALTA [Concomitant]
     Indication: DEPRESSION
     Dosage: 60 MG, BID
  3. DIVALPROEX SODIUM [Concomitant]
     Indication: BIPOLAR DISORDER
     Dosage: 30 MG, QD
  4. IBUPROFEN [Suspect]
     Indication: FIBROMYALGIA
     Dosage: DAILY DOSE 800 MG
     Route: 048
  5. LYRICA [Suspect]
     Indication: FIBROMYALGIA
     Dosage: 150 MG, BID
     Dates: end: 20111201
  6. ACETAMINOPHEN [Suspect]
     Indication: FIBROMYALGIA
  7. UNKNOWN DRUG [Concomitant]
     Indication: SLEEP DISORDER
  8. CYMBALTA [Concomitant]
     Indication: MYALGIA

REACTIONS (7)
  - WEIGHT INCREASED [None]
  - HYPERPHAGIA [None]
  - FIBROMYALGIA [None]
  - INSOMNIA [None]
  - SUICIDE ATTEMPT [None]
  - PAIN IN EXTREMITY [None]
  - BACK PAIN [None]
